FAERS Safety Report 19046801 (Version 2)
Quarter: 2021Q1

REPORT INFORMATION
  Report Type: Report from Study
  Country: JP (occurrence: JP)
  Receive Date: 20210323
  Receipt Date: 20210324
  Transmission Date: 20210420
  Serious: Yes (Death, Life-Threatening, Hospitalization, Other)
  Sender: FDA-Public Use
  Company Number: JP-JNJFOC-A-CH2018-179917

PATIENT
  Age: 34 Year
  Sex: Female
  Weight: 46.4 kg

DRUGS (36)
  1. FERROMIA [Concomitant]
     Active Substance: SODIUM FERROUS CITRATE
     Indication: ANAEMIA
     Dosage: 100 MG, QD
  2. SLOW?K [Concomitant]
     Active Substance: POTASSIUM CHLORIDE
     Indication: HYPOKALAEMIA
     Dosage: 1200 MG, QD
     Dates: end: 20180630
  3. PROCYLIN [Concomitant]
     Active Substance: BERAPROST SODIUM
     Dosage: 60 MCG, QD
  4. SOLU?MEDROL [Concomitant]
     Active Substance: METHYLPREDNISOLONE SODIUM SUCCINATE
     Indication: PROPHYLAXIS
     Dates: start: 20200318, end: 20200605
  5. CISPLATIN. [Concomitant]
     Active Substance: CISPLATIN
     Indication: DIFFUSE LARGE B-CELL LYMPHOMA
     Dates: start: 20200318, end: 20200605
  6. GEMCITABINE [GEMCITABINE HYDROCHLORIDE] [Concomitant]
     Active Substance: GEMCITABINE HYDROCHLORIDE
     Indication: DIFFUSE LARGE B-CELL LYMPHOMA
     Dates: start: 20201106, end: 20201112
  7. BONALON [Concomitant]
     Active Substance: ALENDRONATE SODIUM
     Dosage: 35 MG, UNK
  8. ONDANSETRON [Concomitant]
     Active Substance: ONDANSETRON
     Indication: PROPHYLAXIS
     Dates: start: 20200318, end: 20200605
  9. CISPLATIN. [Concomitant]
     Active Substance: CISPLATIN
     Dates: start: 20201106, end: 20201112
  10. ZOSYN [Concomitant]
     Active Substance: PIPERACILLIN SODIUM\TAZOBACTAM SODIUM
     Indication: PNEUMONIA
     Dates: start: 20200907, end: 20200916
  11. ACELIO [Concomitant]
     Active Substance: ACETAMINOPHEN
     Indication: ABDOMINAL PAIN
     Dates: start: 20201031, end: 20201202
  12. ZERBAXA [Concomitant]
     Active Substance: CEFTOLOZANE SULFATE\TAZOBACTAM SODIUM
     Indication: BACTERIAL INFECTION
     Dates: start: 20201119, end: 20201202
  13. UPTRAVI [Suspect]
     Active Substance: SELEXIPAG
     Indication: PULMONARY ARTERIAL HYPERTENSION
     Dosage: 0.4 MG, BID
     Route: 048
     Dates: start: 20180522, end: 20201121
  14. PREDNISOLONE. [Concomitant]
     Active Substance: PREDNISOLONE
     Indication: THYROIDITIS CHRONIC
     Dosage: 5 MG, QD
  15. AZANIN [Concomitant]
     Active Substance: AZATHIOPRINE
     Indication: MIXED CONNECTIVE TISSUE DISEASE
     Dosage: 50 MG, QD
  16. HYALEIN MINI [Concomitant]
     Active Substance: HYALURONATE SODIUM
     Indication: SJOGREN^S SYNDROME
     Dosage: 6 DF, QD
  17. LEVOFLOXACIN. [Concomitant]
     Active Substance: LEVOFLOXACIN
     Dosage: 4 DF, QD
     Dates: start: 20180630
  18. VEPESID [Concomitant]
     Active Substance: ETOPOSIDE
     Indication: DIFFUSE LARGE B-CELL LYMPHOMA
     Dates: start: 20200318, end: 20200605
  19. SOSEGON [PENTAZOCINE] [Concomitant]
     Active Substance: PENTAZOCINE
     Indication: ABDOMINAL PAIN
     Dates: start: 20201031, end: 20201202
  20. FENTANYL. [Concomitant]
     Active Substance: FENTANYL
     Indication: ABDOMINAL PAIN
     Dates: start: 20201101, end: 20201202
  21. NOREPINEPHRINE HYDROCHLORIDE [Concomitant]
     Active Substance: NOREPINEPHRINE HYDROCHLORIDE, (+/-)-
     Indication: SEPTIC SHOCK
     Dates: start: 20201112, end: 20201126
  22. OPSUMIT [Concomitant]
     Active Substance: MACITENTAN
     Indication: PULMONARY ARTERIAL HYPERTENSION
     Dosage: 10 MG, QD
     Dates: end: 20190604
  23. REVATIO [Concomitant]
     Active Substance: SILDENAFIL CITRATE
     Indication: PULMONARY ARTERIAL HYPERTENSION
     Dosage: 60 MG, QD
  24. RITUXAN [Concomitant]
     Active Substance: RITUXIMAB
     Indication: DIFFUSE LARGE B-CELL LYMPHOMA
     Dates: start: 20200317, end: 20200605
  25. CRAVIT [Concomitant]
     Active Substance: LEVOFLOXACIN
     Indication: PNEUMONIA
     Dates: start: 20200907, end: 20200916
  26. HABEKACIN [ARBEKACIN SULFATE] [Concomitant]
     Indication: BACTERIAL INFECTION
     Dates: start: 20201112
  27. RITUXAN [Concomitant]
     Active Substance: RITUXIMAB
     Dates: start: 20191026, end: 20200212
  28. MEROPENEM TRIHYDRATE [Concomitant]
     Active Substance: MEROPENEM
     Indication: BACTERIAL INFECTION
     Dates: start: 20201112, end: 20201202
  29. PROPOFOL. [Concomitant]
     Active Substance: PROPOFOL
     Indication: ABDOMINAL PAIN
     Dates: start: 20201113, end: 20201202
  30. UPTRAVI [Suspect]
     Active Substance: SELEXIPAG
     Dosage: 0.2 MG, BID
     Route: 048
     Dates: start: 20180306, end: 20180521
  31. RITUXAN [Concomitant]
     Active Substance: RITUXIMAB
     Dates: start: 20201106, end: 20201112
  32. VOLIBRIS [Concomitant]
     Active Substance: AMBRISENTAN
     Indication: PULMONARY ARTERIAL HYPERTENSION
     Dosage: 10 MG, QD
     Dates: start: 20190604
  33. BERASUS [Concomitant]
     Active Substance: BERAPROST SODIUM
     Indication: PULMONARY ARTERIAL HYPERTENSION
     Dosage: 180 MCG, QD
     Dates: start: 20190330
  34. ZOSYN [Concomitant]
     Active Substance: PIPERACILLIN SODIUM\TAZOBACTAM SODIUM
     Dates: start: 20201112
  35. AMIKACIN [AMIKACIN SULFATE] [Concomitant]
     Active Substance: AMIKACIN SULFATE
     Indication: BACTERIAL INFECTION
     Dates: start: 20201114, end: 20201118
  36. MORPHINE [MORPHINE HYDROCHLORIDE] [Concomitant]
     Active Substance: MORPHINE HYDROCHLORIDE
     Indication: ABDOMINAL PAIN
     Dates: end: 20201202

REACTIONS (14)
  - Cardiac failure [Recovering/Resolving]
  - Cystitis [Recovered/Resolved]
  - Bacterial infection [Recovered/Resolved]
  - Bacterial infection [Not Recovered/Not Resolved]
  - Platelet count decreased [Recovering/Resolving]
  - Intussusception [Recovering/Resolving]
  - Septic shock [Recovering/Resolving]
  - Melaena [Recovering/Resolving]
  - Transfusion [Unknown]
  - Pneumonia [Recovering/Resolving]
  - Abdominal pain [Not Recovered/Not Resolved]
  - Diffuse large B-cell lymphoma [Fatal]
  - Pleural effusion [Recovering/Resolving]
  - Protein-losing gastroenteropathy [Recovering/Resolving]

NARRATIVE: CASE EVENT DATE: 20180414
